FAERS Safety Report 17656580 (Version 3)
Quarter: 2020Q2

REPORT INFORMATION
  Report Type: Report from Study
  Country: US (occurrence: US)
  Receive Date: 20200410
  Receipt Date: 20200630
  Transmission Date: 20200713
  Serious: No
  Sender: FDA-Public Use
  Company Number: NVSC2020US097090

PATIENT
  Sex: Male

DRUGS (1)
  1. ENTRESTO [Suspect]
     Active Substance: SACUBITRIL\VALSARTAN
     Indication: CARDIAC FAILURE CHRONIC
     Dosage: UNK
     Route: 065
     Dates: start: 201906

REACTIONS (7)
  - Limb discomfort [Unknown]
  - Blood pressure fluctuation [Unknown]
  - Throat clearing [Not Recovered/Not Resolved]
  - Amnesia [Unknown]
  - Incorrect dose administered [Recovering/Resolving]
  - Sleep disorder [Not Recovered/Not Resolved]
  - Product dose omission [Unknown]
